FAERS Safety Report 10061794 (Version 2)
Quarter: 2014Q2

REPORT INFORMATION
  Report Type: Spontaneous
  Country: US (occurrence: US)
  Receive Date: 20140407
  Receipt Date: 20140425
  Transmission Date: 20141212
  Serious: No
  Sender: FDA-Public Use
  Company Number: US-BIOGENIDEC-2014BI031675

PATIENT
  Sex: Female
  Weight: 49 kg

DRUGS (11)
  1. AVONEX [Suspect]
     Indication: MULTIPLE SCLEROSIS
     Route: 030
     Dates: start: 2003, end: 2007
  2. AVONEX [Suspect]
     Indication: MULTIPLE SCLEROSIS
     Route: 030
     Dates: start: 2011, end: 20140316
  3. ALENDRONATE [Concomitant]
  4. ALPHAGAN P [Concomitant]
     Route: 047
  5. AMPYRA [Concomitant]
     Route: 048
  6. BRIMONIDINE [Concomitant]
  7. CYANOCOBALAMIN [Concomitant]
     Route: 058
  8. DORZOLAMIDE [Concomitant]
     Route: 047
  9. TIMOLOL [Concomitant]
     Route: 047
  10. TECFIDERA [Concomitant]
  11. TRAVATAN Z [Concomitant]
     Route: 047

REACTIONS (9)
  - Anaemia megaloblastic [Unknown]
  - Anaemia vitamin B12 deficiency [Unknown]
  - Lymphopenia [Unknown]
  - Arteritis [Unknown]
  - Osteoporosis [Unknown]
  - Glaucoma [Unknown]
  - Corneal operation [Unknown]
  - Liver function test abnormal [Unknown]
  - Anaemia [Unknown]
